FAERS Safety Report 8219408-1 (Version None)
Quarter: 2012Q1

REPORT INFORMATION
  Report Type: 
  Country: None (occurrence: None)
  Receive Date: 20120319
  Receipt Date: 20120314
  Transmission Date: 20120608
  Serious: Yes (Disabling, Other)
  Sender: FDA-Public Use
  Company Number: US-PFIZER INC-2012054522

PATIENT
  Sex: Female
  Weight: 77.098 kg

DRUGS (3)
  1. EFFEXOR XR [Suspect]
     Dosage: UNK
     Route: 048
  2. MIRAPEX [Concomitant]
     Dosage: 0.5 MG, 3X/DAY
  3. EFFEXOR XR [Suspect]
     Indication: DEPRESSION
     Dosage: 75 MG, 1X/DAY
     Route: 048

REACTIONS (2)
  - HYPERLIPIDAEMIA [None]
  - PARKINSONISM [None]
